FAERS Safety Report 18969565 (Version 1)
Quarter: 2021Q1

REPORT INFORMATION
  Report Type: Report from Study
  Country: US (occurrence: US)
  Receive Date: 20210304
  Receipt Date: 20210304
  Transmission Date: 20210420
  Serious: Yes (Hospitalization)
  Sender: FDA-Public Use
  Company Number: US-ASTRAZENECA-2021A094115

PATIENT
  Age: 5889 Day
  Sex: Male
  Weight: 48 kg

DRUGS (3)
  1. ADDERALL XR [Concomitant]
     Active Substance: AMPHETAMINE ASPARTATE\AMPHETAMINE SULFATE\DEXTROAMPHETAMINE SACCHARATE\DEXTROAMPHETAMINE SULFATE
  2. LORATADINE. [Concomitant]
     Active Substance: LORATADINE
     Dosage: 10.0MG UNKNOWN
  3. KOSELUGO [Suspect]
     Active Substance: SELUMETINIB
     Indication: NEUROFIBROMATOSIS
     Route: 048
     Dates: start: 20210210

REACTIONS (3)
  - Pyrexia [Not Recovered/Not Resolved]
  - Rhinorrhoea [Unknown]
  - Pneumothorax [Unknown]

NARRATIVE: CASE EVENT DATE: 20210223
